FAERS Safety Report 20404836 (Version 1)
Quarter: 2022Q1

REPORT INFORMATION
  Report Type: Spontaneous
  Country: US (occurrence: None)
  Receive Date: 20220128
  Receipt Date: 20220128
  Transmission Date: 20220423
  Serious: Yes (Death)
  Sender: FDA-Public Use
  Company Number: None

PATIENT
  Age: 71 Year
  Sex: Male

DRUGS (1)
  1. ZYTIGA [Suspect]
     Active Substance: ABIRATERONE ACETATE
     Dosage: OTHER QUANTITY : 250MG, 4 TABS;?FREQUENCY : DAILY;?
     Route: 048
     Dates: start: 202106, end: 202111

REACTIONS (1)
  - Death [None]

NARRATIVE: CASE EVENT DATE: 20211101
